FAERS Safety Report 19722871 (Version 1)
Quarter: 2021Q3

REPORT INFORMATION
  Report Type: Spontaneous
  Country: DE (occurrence: DE)
  Receive Date: 20210819
  Receipt Date: 20210819
  Transmission Date: 20211014
  Serious: Yes (Hospitalization)
  Sender: FDA-Public Use
  Company Number: DE-TEVA-2021-DE-1941911

PATIENT
  Age: 66 Year
  Sex: Male
  Weight: 70 kg

DRUGS (6)
  1. TORASEMID [Suspect]
     Active Substance: TORSEMIDE
     Dosage: 10 MILLIGRAM DAILY; 1?0?0?0
     Route: 048
  2. PANTOPRAZOL [Concomitant]
     Active Substance: PANTOPRAZOLE SODIUM
     Dosage: 20 MILLIGRAM DAILY; 1?0?0?0
     Route: 048
  3. METOPROLOLSUCCINAT?1A PHARMA [Concomitant]
     Dosage: 23.75 MILLIGRAM DAILY; 1?0?0?0
     Route: 048
  4. RAMIPRIL. [Concomitant]
     Active Substance: RAMIPRIL
     Dosage: 1 DOSAGE FORMS DAILY; 2.5 MG, 0.5?0?0.5?0
     Route: 048
  5. KALINOR?RETARD P 600MG [Concomitant]
     Dosage: 1800 MILLIGRAM DAILY; 1?1?1?0
     Route: 048
  6. SPIRONOLACTON [Suspect]
     Active Substance: SPIRONOLACTONE
     Dosage: .5 DOSAGE FORMS DAILY; 50 MG, 0.5?0?0?0
     Route: 048

REACTIONS (3)
  - Abdominal pain [Recovering/Resolving]
  - Muscle spasms [Recovering/Resolving]
  - Constipation [Recovering/Resolving]
